FAERS Safety Report 10184081 (Version 1)
Quarter: 2014Q2

REPORT INFORMATION
  Report Type: Spontaneous
  Country: BR (occurrence: BR)
  Receive Date: 20140520
  Receipt Date: 20140520
  Transmission Date: 20141212
  Serious: Yes (Other)
  Sender: FDA-Public Use
  Company Number: BR-ELI_LILLY_AND_COMPANY-BR201405002259

PATIENT
  Sex: Male
  Weight: 55 kg

DRUGS (15)
  1. HUMULIN N [Suspect]
     Indication: DIABETES MELLITUS
     Dosage: 20 IU, EACH MORNING
     Route: 065
     Dates: start: 201404
  2. HUMULIN N [Suspect]
     Dosage: 16 IU, QD
     Route: 065
     Dates: start: 201404
  3. HUMULIN N [Suspect]
     Dosage: 12 IU, EACH EVENING
     Route: 065
     Dates: start: 201404
  4. HUMULIN N [Suspect]
     Dosage: 12 IU, EACH MORNING
     Route: 065
  5. HUMULIN N [Suspect]
     Dosage: 12 IU, QD
     Route: 065
  6. HUMULIN N [Suspect]
     Dosage: 12 IU, EACH EVENING
     Route: 065
  7. HUMULIN R [Suspect]
     Indication: DIABETES MELLITUS
     Dosage: 7 IU, EACH MORNING
     Route: 065
     Dates: start: 201404
  8. HUMULIN R [Suspect]
     Dosage: 10 IU, QD
     Route: 065
     Dates: start: 201404
  9. HUMULIN R [Suspect]
     Dosage: 10 IU, EACH EVENING
     Route: 065
     Dates: start: 201404
  10. HUMULIN R [Suspect]
     Dosage: 12 IU, EACH MORNING
     Route: 065
  11. HUMULIN R [Suspect]
     Dosage: 12 IU, QD
     Route: 065
  12. HUMULIN R [Suspect]
     Dosage: 12 IU, EACH EVENING
     Route: 065
  13. HUMULIN R [Suspect]
     Dosage: 1 IU, PRN
     Route: 065
  14. HUMULIN R [Suspect]
     Dosage: 2 IU, PRN
     Route: 065
  15. HUMULIN R [Suspect]
     Dosage: 4 IU, PRN
     Route: 065

REACTIONS (11)
  - Hyperglycaemic unconsciousness [Unknown]
  - Blood glucose increased [Not Recovered/Not Resolved]
  - Blood glucose abnormal [Unknown]
  - Blood urea abnormal [Unknown]
  - Blood creatine abnormal [Unknown]
  - Blood sodium abnormal [Unknown]
  - Blood potassium abnormal [Unknown]
  - Transaminases abnormal [Unknown]
  - Nutritional condition abnormal [Unknown]
  - Blood count abnormal [Unknown]
  - Injection site pain [Unknown]
